FAERS Safety Report 23591084 (Version 1)
Quarter: 2024Q1

REPORT INFORMATION
  Report Type: Spontaneous
  Country: US (occurrence: None)
  Receive Date: 20240301
  Receipt Date: 20240301
  Transmission Date: 20240410
  Serious: Yes (unspecified)
  Sender: FDA-Public Use
  Company Number: None

PATIENT
  Age: 72 Year
  Sex: Female

DRUGS (1)
  1. LEQVIO [Suspect]
     Active Substance: INCLISIRAN SODIUM
     Indication: Type V hyperlipidaemia
     Dosage: 284MG ONCE
     Route: 058
     Dates: start: 20231212, end: 20240122

REACTIONS (4)
  - Injection site rash [None]
  - Rash pruritic [None]
  - Swelling [None]
  - Feeling abnormal [None]

NARRATIVE: CASE EVENT DATE: 20240122
